FAERS Safety Report 11789916 (Version 4)
Quarter: 2017Q1

REPORT INFORMATION
  Report Type: Report from Study
  Country: JP (occurrence: JP)
  Receive Date: 20151201
  Receipt Date: 20170111
  Transmission Date: 20170428
  Serious: Yes (Hospitalization, Other)
  Sender: FDA-Public Use
  Company Number: JP-ASTELLAS-2008JP002268

PATIENT
  Age: 31 Year
  Sex: Female
  Weight: 41 kg

DRUGS (54)
  1. PREDONINE [Suspect]
     Active Substance: PREDNISOLONE
     Route: 048
     Dates: start: 20080714, end: 20081106
  2. MYSLEE [Concomitant]
     Active Substance: ZOLPIDEM TARTRATE
     Indication: INSOMNIA
     Route: 048
     Dates: start: 20120326, end: 20141112
  3. TERNELIN [Concomitant]
     Active Substance: TIZANIDINE
     Indication: INTERCOSTAL NEURALGIA
     Route: 048
     Dates: start: 20120618, end: 20130508
  4. SALIGREN [Concomitant]
     Route: 048
     Dates: start: 20130109
  5. MUCOSOLVAN [Concomitant]
     Active Substance: AMBROXOL HYDROCHLORIDE
     Indication: NASOPHARYNGITIS
     Route: 048
     Dates: start: 20070907, end: 20070912
  6. TACROLIMUS. [Suspect]
     Active Substance: TACROLIMUS
     Indication: LUPUS NEPHRITIS
     Route: 048
     Dates: start: 20070710, end: 20080807
  7. PREDONINE [Suspect]
     Active Substance: PREDNISOLONE
     Route: 048
     Dates: start: 20070807, end: 20070907
  8. PREDONINE [Suspect]
     Active Substance: PREDNISOLONE
     Route: 048
     Dates: start: 20100112, end: 20100218
  9. PREDONINE [Suspect]
     Active Substance: PREDNISOLONE
     Route: 048
     Dates: start: 20100331, end: 20100520
  10. PREDONINE [Suspect]
     Active Substance: PREDNISOLONE
     Route: 048
     Dates: start: 20100614, end: 20101213
  11. PREDONINE [Suspect]
     Active Substance: PREDNISOLONE
     Route: 048
     Dates: start: 20101214, end: 20110520
  12. PREDONINE [Suspect]
     Active Substance: PREDNISOLONE
     Route: 048
     Dates: start: 20100219, end: 20100330
  13. PREDONINE [Suspect]
     Active Substance: PREDNISOLONE
     Route: 048
     Dates: start: 20141016, end: 20141215
  14. LOXONIN [Concomitant]
     Active Substance: LOXOPROFEN SODIUM
     Indication: INTERCOSTAL NEURALGIA
     Route: 048
     Dates: start: 20120618, end: 20131114
  15. SELTOUCH [Concomitant]
     Active Substance: FELBINAC
     Indication: ARTHRALGIA
     Route: 061
     Dates: start: 20150619, end: 20150818
  16. PERDIPINE [Concomitant]
     Active Substance: NICARDIPINE HYDROCHLORIDE
     Indication: CHEST DISCOMFORT
     Route: 041
     Dates: start: 20130109, end: 20130109
  17. PERDIPINE [Concomitant]
     Active Substance: NICARDIPINE HYDROCHLORIDE
     Indication: HYPERTENSION
  18. PREDONINE [Suspect]
     Active Substance: PREDNISOLONE
     Indication: LUPUS NEPHRITIS
     Route: 048
     Dates: end: 20070806
  19. PREDONINE [Suspect]
     Active Substance: PREDNISOLONE
     Route: 048
     Dates: start: 20080111, end: 20080429
  20. PREDONINE [Suspect]
     Active Substance: PREDNISOLONE
     Route: 048
     Dates: start: 20110521, end: 20121209
  21. PREDONINE [Suspect]
     Active Substance: PREDNISOLONE
     Route: 048
     Dates: start: 20140423, end: 20141015
  22. SALIGREN [Concomitant]
     Indication: DRY MOUTH
     Route: 048
     Dates: start: 20120618, end: 20130108
  23. ECLAR [Concomitant]
     Active Substance: DEPRODONE PROPIONATE
     Indication: PSORIASIS
     Route: 061
     Dates: start: 20140819, end: 20141015
  24. THIATON [Concomitant]
     Active Substance: TIQUIZIUM BROMIDE
     Indication: ABDOMINAL PAIN
     Route: 048
     Dates: start: 20130409, end: 20130413
  25. CLARITH [Concomitant]
     Active Substance: CLARITHROMYCIN
     Indication: WHITE BLOOD CELL COUNT INCREASED
  26. PREDONINE [Suspect]
     Active Substance: PREDNISOLONE
     Route: 048
     Dates: start: 20071006, end: 20071109
  27. PREDONINE [Suspect]
     Active Substance: PREDNISOLONE
     Route: 048
     Dates: start: 20100521, end: 20100613
  28. PREDONINE [Suspect]
     Active Substance: PREDNISOLONE
     Route: 048
     Dates: start: 20141216, end: 20150119
  29. POLYFUL [Concomitant]
     Active Substance: CALCIUM POLYCARBOPHIL
     Indication: DIARRHOEA
     Route: 048
     Dates: start: 20120618
  30. SELTOUCH [Concomitant]
     Active Substance: FELBINAC
     Indication: INTERCOSTAL NEURALGIA
     Route: 061
     Dates: start: 20120618, end: 20130310
  31. CLARITH [Concomitant]
     Active Substance: CLARITHROMYCIN
     Indication: SINUSITIS
     Route: 048
     Dates: start: 20071005, end: 20071009
  32. PREDONINE [Suspect]
     Active Substance: PREDNISOLONE
     Route: 048
     Dates: start: 20071110, end: 20080110
  33. PREDONINE [Suspect]
     Active Substance: PREDNISOLONE
     Route: 048
     Dates: start: 20081107, end: 20100111
  34. PREDONINE [Suspect]
     Active Substance: PREDNISOLONE
     Route: 048
     Dates: start: 20121210, end: 20130108
  35. METHYCOBAL [Concomitant]
     Active Substance: METHYLCOBALAMIN
     Route: 048
     Dates: end: 20131114
  36. RESPLEN [Concomitant]
     Active Substance: EPRAZINONE
     Indication: NASOPHARYNGITIS
     Route: 048
     Dates: start: 20070907, end: 20070912
  37. TACROLIMUS. [Suspect]
     Active Substance: TACROLIMUS
     Route: 048
     Dates: start: 20080808, end: 20121209
  38. PREDONINE [Suspect]
     Active Substance: PREDNISOLONE
     Route: 048
     Dates: start: 20130109, end: 20130207
  39. METHYCOBAL [Concomitant]
     Active Substance: METHYLCOBALAMIN
     Indication: INTERCOSTAL NEURALGIA
     Route: 048
     Dates: start: 20120618, end: 20130508
  40. POLYFUL [Concomitant]
     Active Substance: CALCIUM POLYCARBOPHIL
     Route: 048
     Dates: start: 20140619, end: 20151117
  41. DALACIN T 1% [Concomitant]
     Indication: ACNE
     Dosage: UNK UNK, UNKNOWN FREQ.
     Route: 061
     Dates: start: 20141216, end: 20150120
  42. CALONAL [Concomitant]
     Active Substance: ACETAMINOPHEN
     Indication: SINUSITIS
     Route: 048
     Dates: start: 20071005, end: 20071009
  43. TACROLIMUS. [Suspect]
     Active Substance: TACROLIMUS
     Route: 048
     Dates: start: 20121210
  44. PREDONINE [Suspect]
     Active Substance: PREDNISOLONE
     Route: 048
     Dates: start: 20070908, end: 20071005
  45. PREDONINE [Suspect]
     Active Substance: PREDNISOLONE
     Route: 048
     Dates: start: 20080430, end: 20080713
  46. PREDONINE [Suspect]
     Active Substance: PREDNISOLONE
     Route: 048
     Dates: start: 20130208, end: 20140422
  47. PREDONINE [Suspect]
     Active Substance: PREDNISOLONE
     Route: 048
     Dates: start: 20150120
  48. PREDOHAN [Concomitant]
     Active Substance: PREDNISOLONE
     Indication: LUPUS NEPHRITIS
     Route: 048
     Dates: start: 20080912, end: 20081106
  49. POLYFUL [Concomitant]
     Active Substance: CALCIUM POLYCARBOPHIL
     Indication: PROPHYLAXIS
     Dosage: UNK UNK, AS NEEDED
     Route: 048
     Dates: start: 20120618
  50. ZOLPIDEM TARTRATE. [Concomitant]
     Active Substance: ZOLPIDEM TARTRATE
     Indication: PROPHYLAXIS
     Route: 048
     Dates: start: 20141113
  51. MYSER                              /00115501/ [Concomitant]
     Active Substance: CYCLOSERINE
     Indication: PSORIASIS
     Route: 061
     Dates: start: 20140717, end: 20140917
  52. OXAROL [Concomitant]
     Active Substance: MAXACALCITOL
     Indication: PSORIASIS
     Route: 061
     Dates: start: 20140717, end: 20141015
  53. LOCOID [Concomitant]
     Active Substance: HYDROCORTISONE BUTYRATE
     Indication: PSORIASIS
     Route: 061
     Dates: start: 20140717, end: 20140917
  54. FERROUS SULFATE. [Concomitant]
     Active Substance: FERROUS SULFATE
     Indication: IRON DEFICIENCY ANAEMIA
     Route: 048
     Dates: start: 20080526, end: 20090910

REACTIONS (20)
  - Chest discomfort [Recovered/Resolved]
  - Hypertension [Recovered/Resolved]
  - Peripheral arthritis [Recovered/Resolved]
  - Beta 2 microglobulin increased [Recovering/Resolving]
  - Blood albumin decreased [Recovering/Resolving]
  - Menorrhagia [Recovered/Resolved]
  - Arthritis [Recovered/Resolved]
  - Uterine leiomyoma [Recovered/Resolved]
  - Nasopharyngitis [Recovered/Resolved]
  - Diarrhoea [Recovering/Resolving]
  - Abdominal pain [Recovered/Resolved]
  - White blood cell count increased [Recovered/Resolved]
  - Iron deficiency anaemia [Recovered/Resolved]
  - Blood potassium decreased [Recovered/Resolved]
  - Intercostal neuralgia [Recovering/Resolving]
  - Arthralgia [Not Recovered/Not Resolved]
  - Sinusitis [Recovering/Resolving]
  - Dry mouth [Recovering/Resolving]
  - Acne [Recovered/Resolved]
  - Insomnia [Recovering/Resolving]

NARRATIVE: CASE EVENT DATE: 20070907
